FAERS Safety Report 7207579-5 (Version None)
Quarter: 2011Q1

REPORT INFORMATION
  Report Type: 
  Country: None (occurrence: None)
  Receive Date: 20110103
  Receipt Date: 20101222
  Transmission Date: 20110831
  Serious: Yes (Other)
  Sender: FDA-Public Use
  Company Number: CA-PFIZER INC-2010177472

PATIENT
  Age: 45 Year
  Sex: Female

DRUGS (2)
  1. EFFEXOR XR [Suspect]
     Dosage: 75 MG, UNK
  2. EFFEXOR XR [Suspect]
     Dosage: 150 MG, SINCE A COUPLE OF YEARS

REACTIONS (3)
  - IDEAS OF REFERENCE [None]
  - SOMNOLENCE [None]
  - DELIRIUM [None]
